FAERS Safety Report 13047571 (Version 7)
Quarter: 2018Q3

REPORT INFORMATION
  Report Type: Spontaneous
  Country: CA (occurrence: CA)
  Receive Date: 20161220
  Receipt Date: 20180904
  Transmission Date: 20181010
  Serious: Yes (Other)
  Sender: FDA-Public Use
  Company Number: CA-CELLTRION INC.-2016CA011315

PATIENT

DRUGS (36)
  1. INFLECTRA [Suspect]
     Active Substance: INFLIXIMAB-DYYB
     Indication: PSORIATIC ARTHROPATHY
     Dosage: 500 MG, CYCLIC (Q 0,2,6 WEEKS, THEN EVERY 8 WEEKS FOR 12 MONTHS)
     Route: 041
     Dates: start: 20160314
  2. EZETIMIBE. [Concomitant]
     Active Substance: EZETIMIBE
     Dosage: 10 MG
  3. RAMIPRIL. [Concomitant]
     Active Substance: RAMIPRIL
     Dosage: 5 MG
  4. A?HYDROCORT [Concomitant]
     Active Substance: HYDROCORTISONE SODIUM SUCCINATE
  5. INFLECTRA [Suspect]
     Active Substance: INFLIXIMAB-DYYB
     Dosage: 500 MG, CYCLIC500 MG, CYCLIC (Q 0,2,6 WEEKS, THEN EVERY 8 WEEKS FOR 12 MONTHS)
     Route: 041
  6. INFLECTRA [Suspect]
     Active Substance: INFLIXIMAB-DYYB
     Dosage: 500 MG, CYCLIC (Q 2,6 WEEKS, THEN EVERY 7 WEEKS FOR 12 MONTHS)
     Route: 042
  7. INFLECTRA [Suspect]
     Active Substance: INFLIXIMAB-DYYB
     Dosage: 500 MG, EVERY 7 WEEKS
     Route: 042
     Dates: start: 20160810, end: 20160927
  8. EZETIMIBE. [Concomitant]
     Active Substance: EZETIMIBE
     Dosage: 10 MG
     Route: 065
  9. KETODERM                           /00532501/ [Concomitant]
     Active Substance: KETOCONAZOLE
     Dosage: UNK
  10. INFLECTRA [Suspect]
     Active Substance: INFLIXIMAB-DYYB
     Dosage: 600 MG, CYCLIC (EVERY 7 WEEKS)
     Route: 042
     Dates: start: 20161115, end: 20170717
  11. CLOBEX                             /00012002/ [Concomitant]
     Active Substance: CLOXACILLIN SODIUM
     Dosage: UNK
  12. DOVOBET [Concomitant]
     Active Substance: BETAMETHASONE\CALCIPOTRIENE
     Dosage: UNK
     Route: 065
  13. DOVOBET [Concomitant]
     Active Substance: BETAMETHASONE\CALCIPOTRIENE
     Dosage: UNK
  14. RABEPRAZOLE [Concomitant]
     Active Substance: RABEPRAZOLE
     Dosage: 20 MG
  15. CLOBETASOL [Concomitant]
     Active Substance: CLOBETASOL
     Dosage: UNK
  16. ROSUVASTATIN. [Concomitant]
     Active Substance: ROSUVASTATIN
     Dosage: 20 MG
  17. ROSUVASTATIN. [Concomitant]
     Active Substance: ROSUVASTATIN
     Dosage: 20 MG
  18. CLOBEX                             /00012002/ [Concomitant]
     Active Substance: CLOXACILLIN SODIUM
     Dosage: UNK
     Route: 065
  19. NAPRO?A [Concomitant]
     Dosage: 550 MG
     Route: 065
  20. NAPRO?A [Concomitant]
     Dosage: 550 MG
  21. CLOBETASOL [Concomitant]
     Active Substance: CLOBETASOL
     Dosage: 0.05 %, UNK
     Route: 065
  22. KETODERM                           /00532501/ [Concomitant]
     Active Substance: KETOCONAZOLE
     Dosage: UNK
  23. RABEPRAZOLE [Concomitant]
     Active Substance: RABEPRAZOLE
     Dosage: 20 MG
  24. RAMIPRIL. [Concomitant]
     Active Substance: RAMIPRIL
     Dosage: 5 MG
  25. ROSUVASTATIN. [Concomitant]
     Active Substance: ROSUVASTATIN
     Dosage: 20 MG
     Route: 065
  26. OTEZLA [Concomitant]
     Active Substance: APREMILAST
     Dosage: UNK, (OFF LABEL USE)
  27. CLOBEX                             /00012002/ [Concomitant]
     Active Substance: CLOXACILLIN SODIUM
     Dosage: UNK
  28. EZETIMIBE. [Concomitant]
     Active Substance: EZETIMIBE
     Dosage: 10 MG
  29. RABEPRAZOLE [Concomitant]
     Active Substance: RABEPRAZOLE
     Dosage: 20 MG
     Route: 065
  30. HYDROCORTISONE W/SULFUR [Concomitant]
     Dosage: UNK
  31. DOVOBET [Concomitant]
     Active Substance: BETAMETHASONE\CALCIPOTRIENE
     Dosage: UNK
  32. KETODERM                           /00532501/ [Concomitant]
     Active Substance: KETOCONAZOLE
     Dosage: UNK
     Route: 065
  33. RAMIPRIL. [Concomitant]
     Active Substance: RAMIPRIL
     Dosage: 5 MG
     Route: 065
  34. NAPRO?A [Concomitant]
     Dosage: 550 MG
  35. CLOBETASOL [Concomitant]
     Active Substance: CLOBETASOL
     Dosage: UNK
  36. HYDERM                             /00028601/ [Concomitant]
     Dosage: UNK

REACTIONS (8)
  - Psoriasis [Not Recovered/Not Resolved]
  - Blood pressure increased [Unknown]
  - Condition aggravated [Unknown]
  - Stress [Not Recovered/Not Resolved]
  - Product use in unapproved indication [Unknown]
  - Inappropriate schedule of drug administration [Unknown]
  - Heart rate decreased [Unknown]
  - Fatigue [Not Recovered/Not Resolved]

NARRATIVE: CASE EVENT DATE: 201603
